FAERS Safety Report 18665564 (Version 1)
Quarter: 2020Q4

REPORT INFORMATION
  Report Type: Spontaneous
  Country: GB (occurrence: GB)
  Receive Date: 20201226
  Receipt Date: 20201226
  Transmission Date: 20210114
  Serious: No
  Sender: FDA-Public Use
  Company Number: GB-ALKEM LABORATORIES LIMITED-GB-ALKEM-2020-04312

PATIENT
  Age: 8 Year
  Sex: Male

DRUGS (13)
  1. CIPROFLOXACIN. [Interacting]
     Active Substance: CIPROFLOXACIN
     Indication: PRODUCT USED FOR UNKNOWN INDICATION
     Dosage: UNK, (EVERY)
     Route: 065
  2. MYCOPHENOLATE MOFETIL. [Suspect]
     Active Substance: MYCOPHENOLATE MOFETIL
     Indication: IMMUNOSUPPRESSANT DRUG THERAPY
     Dosage: UNK, (EVERY)
     Route: 065
  3. RIFABUTIN. [Interacting]
     Active Substance: RIFABUTIN
     Indication: MYCOBACTERIAL INFECTION
     Dosage: UNK, (EVERY)
     Route: 065
  4. ETHAMBUTOL [Interacting]
     Active Substance: ETHAMBUTOL HYDROCHLORIDE
     Indication: MYCOBACTERIAL INFECTION
  5. FLUCLOXACILLIN [Interacting]
     Active Substance: FLUCLOXACILLIN
     Indication: IMPETIGO
     Dosage: UNK, (EVERY)
     Route: 065
  6. ETHAMBUTOL [Interacting]
     Active Substance: ETHAMBUTOL HYDROCHLORIDE
     Indication: CAT SCRATCH DISEASE
     Dosage: UNK, (EVERY)
     Route: 065
  7. FLUCLOXACILLIN [Interacting]
     Active Substance: FLUCLOXACILLIN
     Indication: LYMPHADENOPATHY
  8. TACROLIMUS. [Interacting]
     Active Substance: TACROLIMUS
     Indication: IMMUNOSUPPRESSANT DRUG THERAPY
     Dosage: UNK, (EVERY)
     Route: 065
  9. RIFABUTIN. [Interacting]
     Active Substance: RIFABUTIN
     Indication: CAT SCRATCH DISEASE
  10. RIFAMPICIN [Interacting]
     Active Substance: RIFAMPIN
     Indication: MYCOBACTERIAL INFECTION
     Dosage: UNK, (EVERY)
     Route: 065
  11. CLARITHROMYCIN. [Interacting]
     Active Substance: CLARITHROMYCIN
     Indication: MYCOBACTERIAL INFECTION
     Dosage: UNK, (EVERY)
     Route: 065
  12. CLARITHROMYCIN. [Interacting]
     Active Substance: CLARITHROMYCIN
     Indication: CAT SCRATCH DISEASE
  13. RIFAMPICIN [Interacting]
     Active Substance: RIFAMPIN
     Indication: CAT SCRATCH DISEASE

REACTIONS (1)
  - Drug interaction [Unknown]
